FAERS Safety Report 21121605 (Version 1)
Quarter: 2022Q3

REPORT INFORMATION
  Report Type: Spontaneous
  Country: PR (occurrence: PR)
  Receive Date: 20220722
  Receipt Date: 20220722
  Transmission Date: 20221026
  Serious: No
  Sender: FDA-Public Use
  Company Number: PR-JAZZ-2022-PR-015938

PATIENT
  Sex: Male
  Weight: 24 kg

DRUGS (3)
  1. RYLAZE [Suspect]
     Active Substance: ASPARAGINASE ERWINIA CHRYSANTHEMI (RECOMBINANT)-RYWN
     Indication: Acute lymphocytic leukaemia
     Dosage: 0.9 MILLILITER
     Route: 030
     Dates: start: 20220401
  2. RYLAZE [Suspect]
     Active Substance: ASPARAGINASE ERWINIA CHRYSANTHEMI (RECOMBINANT)-RYWN
     Dosage: MORE THAN 0.9 ML BUT LESS THAN 1ML
     Route: 030
     Dates: start: 20220404
  3. RYLAZE [Suspect]
     Active Substance: ASPARAGINASE ERWINIA CHRYSANTHEMI (RECOMBINANT)-RYWN
     Dosage: 1 MILLILITER
     Route: 030
     Dates: start: 20220406

REACTIONS (3)
  - Underdose [Unknown]
  - Off label use [Unknown]
  - Product packaging quantity issue [Unknown]
